FAERS Safety Report 18873933 (Version 2)
Quarter: 2021Q1

REPORT INFORMATION
  Report Type: Spontaneous
  Country: US (occurrence: US)
  Receive Date: 20210210
  Receipt Date: 20210224
  Transmission Date: 20210420
  Serious: No
  Sender: FDA-Public Use
  Company Number: US-PFIZER INC-2021114286

PATIENT
  Age: 68 Year
  Sex: Female

DRUGS (1)
  1. XELJANZ [Suspect]
     Active Substance: TOFACITINIB CITRATE
     Dosage: 5 MG

REACTIONS (6)
  - Pain in extremity [Unknown]
  - Memory impairment [Unknown]
  - Swelling [Unknown]
  - Malaise [Unknown]
  - Feeling abnormal [Unknown]
  - Fibromyalgia [Unknown]
